FAERS Safety Report 8816516 (Version 2)
Quarter: 2012Q4

REPORT INFORMATION
  Report Type: Spontaneous
  Country: US (occurrence: None)
  Receive Date: 20120927
  Receipt Date: 20121004
  Transmission Date: 20130627
  Serious: Yes (Death, Life-Threatening)
  Sender: FDA-Public Use
  Company Number: 1424951

PATIENT
  Age: 79 Year
  Sex: Male

DRUGS (1)
  1. NITROPRESS [Suspect]
     Indication: AORTIC STENOSIS
     Dates: start: 20120913, end: 20120913

REACTIONS (5)
  - Brain death [None]
  - Cardio-respiratory arrest [None]
  - Device malfunction [None]
  - Medical device complication [None]
  - Blood cyanide increased [None]
